FAERS Safety Report 21655511 (Version 1)
Quarter: 2022Q4

REPORT INFORMATION
  Report Type: Spontaneous
  Country: US (occurrence: None)
  Receive Date: 20221125
  Receipt Date: 20221125
  Transmission Date: 20230113
  Serious: Yes (Hospitalization)
  Sender: FDA-Public Use
  Company Number: None

PATIENT
  Sex: Male

DRUGS (14)
  1. LENALIDOMIDE [Suspect]
     Active Substance: LENALIDOMIDE
     Indication: Plasma cell myeloma
     Dosage: FREQUENCY : DAILY;?
     Route: 048
     Dates: start: 202210
  2. ACETAMINOPHEN [Concomitant]
  3. ASPIRIN [Concomitant]
  4. BORTEZOMIB [Concomitant]
  5. COREG [Concomitant]
  6. DARZALEX [Concomitant]
  7. DEMAMETHASONE [Concomitant]
  8. DIPHENHYDRAMINE [Concomitant]
  9. LEVOTHYROXINE [Concomitant]
  10. LIPITOR [Concomitant]
  11. LISINOPRIL [Concomitant]
  12. NORCO [Concomitant]
  13. SENNA [Concomitant]
  14. ZOFRAN [Concomitant]

REACTIONS (2)
  - Peripheral swelling [None]
  - Pulmonary oedema [None]
